FAERS Safety Report 25707679 (Version 4)
Quarter: 2025Q4

REPORT INFORMATION
  Report Type: Report from Study
  Country: US (occurrence: None)
  Receive Date: 20250820
  Receipt Date: 20251208
  Transmission Date: 20260117
  Serious: Yes (Life-Threatening, Disabling, Other)
  Sender: UCB
  Company Number: US-UCBSA-2025050303

PATIENT
  Age: 64 Year
  Weight: 61 kg

DRUGS (4)
  1. BIMEKIZUMAB [Suspect]
     Active Substance: BIMEKIZUMAB
     Indication: Psoriatic arthropathy
     Dosage: 160 MILLIGRAM, EV 4 WEEKS
  2. GABAPENTIN [Concomitant]
     Active Substance: GABAPENTIN
     Indication: Product used for unknown indication
     Dosage: UNK
  3. METHOTREXATE [Concomitant]
     Active Substance: METHOTREXATE
     Indication: Product used for unknown indication
     Dosage: UNK
  4. METHYLPREDNISOLONE [Concomitant]
     Active Substance: METHYLPREDNISOLONE
     Indication: Product used for unknown indication
     Dosage: UNK

REACTIONS (8)
  - Cerebral haemorrhage [Recovering/Resolving]
  - Psoriatic arthropathy [Not Recovered/Not Resolved]
  - Neuropathy peripheral [Not Recovered/Not Resolved]
  - Ischaemic stroke [Recovering/Resolving]
  - Sexual dysfunction [Not Recovered/Not Resolved]
  - Incontinence [Not Recovered/Not Resolved]
  - Nerve injury [Not Recovered/Not Resolved]
  - Aphasia [Unknown]
